FAERS Safety Report 4717334-3 (Version None)
Quarter: 2005Q3

REPORT INFORMATION
  Report Type: 
  Country: None (occurrence: None)
  Receive Date: 20050712
  Receipt Date: 20040527
  Transmission Date: 20060218
  Serious: Yes (Other)
  Sender: FDA-Public Use
  Company Number: HQWYE136628MAY04

PATIENT
  Age: 70 Year
  Sex: Male
  Weight: 92.4 kg

DRUGS (7)
  1. MYLOTARG [Suspect]
     Indication: ACUTE MYELOID LEUKAEMIA
     Dosage: 18 MG 1X PER 1 DAY, INTRAVENOUS
     Route: 042
     Dates: start: 20040524, end: 20040524
  2. LASIX [Concomitant]
  3. LOPRESSOR [Concomitant]
  4. ALLOPURINOL [Concomitant]
  5. DEXAMETHASONE [Concomitant]
  6. THIABENDAZOLE (TIABENDAZOLE) [Concomitant]
  7. PROTONIX [Concomitant]

REACTIONS (1)
  - HAEMATURIA [None]
